FAERS Safety Report 6158288-5 (Version None)
Quarter: 2009Q2

REPORT INFORMATION
  Report Type: 
  Country: None (occurrence: None)
  Receive Date: 20090417
  Receipt Date: 20090409
  Transmission Date: 20091009
  Serious: Yes (Other)
  Sender: FDA-Public Use
  Company Number: JP-ASTRAZENECA-2009SE01478

PATIENT
  Age: 53 Year
  Sex: Female

DRUGS (5)
  1. AMIAS 4MG TABLETS [Suspect]
     Indication: HYPERTENSION
     Route: 048
     Dates: start: 20081201
  2. ASPIRIN [Concomitant]
     Route: 065
  3. METOPROLOL TARTRATE [Concomitant]
     Route: 065
  4. RANITIDNE [Concomitant]
     Route: 065
  5. THYROXINE [Concomitant]
     Route: 065

REACTIONS (2)
  - BREAST TENDERNESS [None]
  - POSTMENOPAUSAL HAEMORRHAGE [None]
